FAERS Safety Report 12730387 (Version 1)
Quarter: 2016Q3

REPORT INFORMATION
  Report Type: Report from Study
  Country: FR (occurrence: FR)
  Receive Date: 20160909
  Receipt Date: 20160909
  Transmission Date: 20161109
  Serious: Yes (Hospitalization)
  Sender: FDA-Public Use
  Company Number: FR-ABBVIE-16K-056-1720325-00

PATIENT
  Age: 59 Year
  Sex: Male

DRUGS (1)
  1. DUODOPA [Suspect]
     Active Substance: CARBIDOPA\LEVODOPA
     Indication: PRODUCT USED FOR UNKNOWN INDICATION
     Dosage: MD:-, EXTRA DOSE: 2 ML, CD FLOW RATE: 6 ML/H
     Route: 050
     Dates: start: 201505

REACTIONS (5)
  - Nausea [Unknown]
  - Device damage [Unknown]
  - Gastrooesophageal reflux disease [Unknown]
  - Freezing phenomenon [Unknown]
  - Device issue [Unknown]

NARRATIVE: CASE EVENT DATE: 20160720
